FAERS Safety Report 13790818 (Version 1)
Quarter: 2017Q3

REPORT INFORMATION
  Report Type: Spontaneous
  Country: US (occurrence: US)
  Receive Date: 20170725
  Receipt Date: 20170725
  Transmission Date: 20171127
  Serious: Yes (Other)
  Sender: FDA-Public Use
  Company Number: US-GLAXOSMITHKLINE-US2017111869

PATIENT
  Age: 66 Year
  Sex: Female

DRUGS (3)
  1. SENSODYNE COMPLETE PROTECTION [Suspect]
     Active Substance: STANNOUS FLUORIDE
     Indication: SENSITIVITY OF TEETH
     Dosage: UNK
     Dates: start: 201707, end: 20170717
  2. BIOTENE MOUTH SPRAY (SAVANNAH) OROMUCOSAL SPRAY [Suspect]
     Active Substance: GLYCERIN
     Indication: DRY THROAT
     Dosage: UNK
  3. BIOTENE ORIGINAL ORAL RINSE (SAVANNAH) MOUTH WASH [Suspect]
     Active Substance: GLYCERIN
     Indication: DRY THROAT
     Dosage: UNK
     Dates: start: 2017

REACTIONS (14)
  - Oral discomfort [Recovered/Resolved]
  - Intentional product misuse [Unknown]
  - Product use in unapproved indication [Unknown]
  - Device use issue [Unknown]
  - Accidental device ingestion [Unknown]
  - Toothache [Unknown]
  - Accidental exposure to product [Unknown]
  - Inappropriate schedule of drug administration [Unknown]
  - Device used for unapproved schedule [Unknown]
  - Incorrect dosage administered [Unknown]
  - Gingival pain [Recovered/Resolved]
  - Drug administered at inappropriate site [Unknown]
  - Intentional device misuse [Unknown]
  - Device use error [Unknown]
